FAERS Safety Report 7427402-3 (Version None)
Quarter: 2011Q2

REPORT INFORMATION
  Report Type: 
  Country: None (occurrence: None)
  Receive Date: 20110420
  Receipt Date: 20110325
  Transmission Date: 20111010
  Serious: No
  Sender: FDA-Public Use
  Company Number: US-B.I. PHARMACEUTICALS,INC./RIDGEFIELD-2011-BP-09295BP

PATIENT
  Sex: Female

DRUGS (6)
  1. DORZOLAMIDE HCL [Concomitant]
     Indication: GLAUCOMA
     Route: 031
  2. DIOVAN HCT [Concomitant]
     Indication: HYPERTENSION
     Route: 048
  3. PILOCARPINE HCL [Concomitant]
     Indication: GLAUCOMA
     Route: 031
  4. POTASSIUM CHLORIDE [Concomitant]
     Indication: PROPHYLAXIS
     Dosage: 30 MEQ
     Route: 048
  5. PRADAXA [Suspect]
     Indication: ATRIAL FIBRILLATION
     Dosage: 300 MG
     Route: 048
     Dates: start: 20110301
  6. LABETALOL [Concomitant]
     Indication: HYPERTENSION
     Dosage: 200 MG
     Route: 048

REACTIONS (2)
  - DYSPEPSIA [None]
  - MUSCULOSKELETAL CHEST PAIN [None]
